FAERS Safety Report 10570818 (Version 1)
Quarter: 2014Q4

REPORT INFORMATION
  Report Type: Spontaneous
  Country: US (occurrence: None)
  Receive Date: 20141106
  Receipt Date: 20141106
  Transmission Date: 20150529
  Serious: Yes (Other)
  Sender: FDA-Public Use
  Company Number: None

PATIENT
  Age: 72 Year
  Sex: Female
  Weight: 53.52 kg

DRUGS (3)
  1. LEVOTHYROXINE [Concomitant]
     Active Substance: LEVOTHYROXINE
  2. XALATAN BRAND GLACOMA DROPS [Concomitant]
  3. AVAPRO [Suspect]
     Active Substance: IRBESARTAN
     Indication: BLOOD PRESSURE
     Dosage: 150?1 X DAY?THERAPY?LATE SUMER, EARLY FALL 2013
     Dates: start: 2013

REACTIONS (4)
  - Drug ineffective [None]
  - Blood pressure increased [None]
  - Visual impairment [None]
  - Glaucoma [None]

NARRATIVE: CASE EVENT DATE: 201307
